FAERS Safety Report 23581758 (Version 2)
Quarter: 2024Q2

REPORT INFORMATION
  Report Type: Report from Study
  Country: US (occurrence: US)
  Receive Date: 20240229
  Receipt Date: 20240509
  Transmission Date: 20240717
  Serious: Yes (Other)
  Sender: FDA-Public Use
  Company Number: US-PFIZER INC-202400052287

PATIENT
  Age: 69 Year
  Sex: Female
  Weight: 115.65 kg

DRUGS (2)
  1. BRAFTOVI [Suspect]
     Active Substance: ENCORAFENIB
     Indication: Malignant melanoma
     Dosage: 300 MG, 1X/DAY
     Route: 048
     Dates: start: 20220415
  2. MEKTOVI [Suspect]
     Active Substance: BINIMETINIB
     Indication: Malignant melanoma
     Dosage: 30 MG, 2X/DAY
     Route: 048
     Dates: start: 20220415

REACTIONS (10)
  - Macular degeneration [Not Recovered/Not Resolved]
  - Blood pressure increased [Recovering/Resolving]
  - Blood cholesterol increased [Recovered/Resolved]
  - Taste disorder [Recovered/Resolved]
  - Inflammation [Unknown]
  - Arthritis [Unknown]
  - Rash macular [Unknown]
  - Inflammatory pain [Unknown]
  - Joint stiffness [Unknown]
  - Arthralgia [Unknown]

NARRATIVE: CASE EVENT DATE: 20220101
